FAERS Safety Report 12390481 (Version 1)
Quarter: 2016Q2

REPORT INFORMATION
  Report Type: Spontaneous
  Country: SE (occurrence: SE)
  Receive Date: 20160520
  Receipt Date: 20160520
  Transmission Date: 20160815
  Serious: Yes (Other)
  Sender: FDA-Public Use
  Company Number: SE-JNJFOC-20160518121

PATIENT
  Age: 50 Year
  Sex: Male

DRUGS (6)
  1. XARELTO [Suspect]
     Active Substance: RIVAROXABAN
     Indication: EMBOLISM VENOUS
     Route: 048
     Dates: start: 20151130, end: 201512
  2. XARELTO [Suspect]
     Active Substance: RIVAROXABAN
     Indication: EMBOLISM VENOUS
     Route: 048
     Dates: start: 201604, end: 20160502
  3. XARELTO [Suspect]
     Active Substance: RIVAROXABAN
     Indication: DEEP VEIN THROMBOSIS
     Route: 048
     Dates: start: 201604, end: 20160502
  4. XARELTO [Suspect]
     Active Substance: RIVAROXABAN
     Indication: POST THROMBOTIC SYNDROME
     Route: 048
     Dates: start: 20151130, end: 201512
  5. XARELTO [Suspect]
     Active Substance: RIVAROXABAN
     Indication: POST THROMBOTIC SYNDROME
     Route: 048
     Dates: start: 201604, end: 20160502
  6. XARELTO [Suspect]
     Active Substance: RIVAROXABAN
     Indication: DEEP VEIN THROMBOSIS
     Route: 048
     Dates: start: 20151130, end: 201512

REACTIONS (1)
  - Headache [Not Recovered/Not Resolved]

NARRATIVE: CASE EVENT DATE: 201511
